FAERS Safety Report 24019019 (Version 1)
Quarter: 2024Q2

REPORT INFORMATION
  Report Type: Spontaneous
  Country: GB (occurrence: GB)
  Receive Date: 20240627
  Receipt Date: 20240627
  Transmission Date: 20240716
  Serious: Yes (Other)
  Sender: FDA-Public Use
  Company Number: GB-MHRA-TPP6666599C2189717YC1718899893881

PATIENT
  Age: 51 Year
  Sex: Male
  Weight: 92 kg

DRUGS (11)
  1. DOXYCYCLINE [Suspect]
     Active Substance: DOXYCYCLINE\DOXYCYCLINE HYCLATE
     Dosage: TWO NOW THEN ONE DAILY
     Route: 065
     Dates: start: 20240614
  2. TESTOSTERONE [Concomitant]
     Active Substance: TESTOSTERONE
     Dosage: DEPRESSIONS, DOSE FORM REPORTED: TPP YC - PLEASE RECLASSIFY
     Dates: start: 20221124
  3. MIRTAZAPINE [Concomitant]
     Active Substance: MIRTAZAPINE
     Dosage: AT NIGHT
     Dates: start: 20230313
  4. FUSIDIC ACID [Concomitant]
     Active Substance: FUSIDIC ACID
     Dosage: DOSE FORM REPORTED: TPP YC - PLEASE RECLASSIFY, DURATION: 8 DAYS
     Dates: start: 20240424, end: 20240501
  5. DERMOL [Concomitant]
     Active Substance: BENZALKONIUM CHLORIDE\CHLORHEXIDINE HYDROCHLORIDE\ISOPROPYL MYRISTATE\PARAFFIN
     Dosage: USE AS A SOAP SUBSTITUTE, DOSE FORM REPORTED: TPP YC - PLEASE RECLASSIFY
     Dates: start: 20240614
  6. CLARITHROMYCIN [Concomitant]
     Active Substance: CLARITHROMYCIN
     Dosage: DOSE FORM REPORTED: TPP YC - PLEASE RECLASSIFY
     Dates: start: 20240618
  7. FEXOFENADINE [Concomitant]
     Active Substance: FEXOFENADINE HYDROCHLORIDE
     Dosage: DOSE FORM REPORTED: TPP YC - PLEASE RECLASSIFY
     Dates: start: 20240618
  8. DOXAZOSIN [Concomitant]
     Active Substance: DOXAZOSIN MESYLATE
     Dosage: IN EVENING, DOSE FORM REPORTED: TPP YC - PLEASE RECLASSIFY
     Dates: start: 20230630
  9. VENLAFAXINE [Concomitant]
     Active Substance: VENLAFAXINE HYDROCHLORIDE
     Dosage: DOSE FORM REPORTED: TPP YC - PLEASE RECLASSIFY
     Dates: start: 20230630
  10. PREDNISOLONE [Concomitant]
     Active Substance: PREDNISOLONE
     Dosage: (1 DAY COURSE), DURATION: 1 DAY
     Dates: start: 20240510, end: 20240511
  11. ERYTHROMYCIN [Concomitant]
     Active Substance: ERYTHROMYCIN
     Dosage: DOSE FORM REPORTED: TPP YC - PLEASE RECLASSIFY, DURATION: 8 DAYS
     Dates: start: 20240510, end: 20240517

REACTIONS (1)
  - Swelling face [Recovering/Resolving]

NARRATIVE: CASE EVENT DATE: 20240617
